FAERS Safety Report 4644073-X (Version None)
Quarter: 2005Q2

REPORT INFORMATION
  Report Type: 
  Country: None (occurrence: None)
  Receive Date: 20050425
  Receipt Date: 20050419
  Transmission Date: 20051028
  Serious: Yes (Other)
  Sender: FDA-Public Use
  Company Number: JP-ROCHE-402556

PATIENT
  Age: 65 Year
  Sex: Male

DRUGS (2)
  1. PEGASYS [Suspect]
     Route: 058
     Dates: start: 20040315, end: 20040830
  2. PEGASYS [Suspect]
     Route: 058
     Dates: start: 20040914, end: 20041202

REACTIONS (2)
  - DRUG INEFFECTIVE [None]
  - PROSTATITIS [None]
